FAERS Safety Report 7901832-5 (Version None)
Quarter: 2011Q4

REPORT INFORMATION
  Report Type: 
  Country: None (occurrence: None)
  Receive Date: 20111108
  Receipt Date: 20111030
  Transmission Date: 20120403
  Serious: Yes (Hospitalization)
  Sender: FDA-Public Use
  Company Number: NZ-B.I. PHARMACEUTICALS,INC./RIDGEFIELD-2011-EU-00109AU

PATIENT
  Sex: Male

DRUGS (5)
  1. SIMVASTATIN [Concomitant]
     Indication: HYPERLIPIDAEMIA
     Dosage: 80 MG
     Route: 048
     Dates: end: 20110801
  2. METFFORMIN HYDROCHLORIDE [Concomitant]
     Indication: TYPE 2 DIABETES MELLITUS
     Dosage: 2.5 G
     Route: 048
  3. PRADAXA [Suspect]
     Indication: ATRIAL FLUTTER
     Dosage: 300 MG
     Route: 048
     Dates: start: 20110701
  4. FINASTERIDE [Concomitant]
     Dosage: 4 MG
     Route: 048
  5. FELODIPINE [Concomitant]
     Indication: ESSENTIAL HYPERTENSION
     Dosage: 2.5 MG
     Route: 048
     Dates: end: 20110801

REACTIONS (3)
  - DRUG INEFFECTIVE [None]
  - HYPERTENSION [None]
  - PNEUMONIA [None]
